FAERS Safety Report 17443375 (Version 1)
Quarter: 2020Q1

REPORT INFORMATION
  Report Type: Spontaneous
  Country: US (occurrence: US)
  Receive Date: 20200221
  Receipt Date: 20200221
  Transmission Date: 20200409
  Serious: No
  Sender: FDA-Public Use
  Company Number: US-DRREDDYS-USA/USA/20/0119717

PATIENT
  Age: 37 Year
  Sex: Male
  Weight: 67.5 kg

DRUGS (2)
  1. OMEPRAZOLE DELAYED RELEASE CAPSULES 20 MG [Concomitant]
     Active Substance: OMEPRAZOLE
     Indication: PRODUCT USED FOR UNKNOWN INDICATION
     Route: 048
  2. NICOTINE. [Suspect]
     Active Substance: NICOTINE
     Indication: TOBACCO USER
     Route: 062
     Dates: start: 20200209

REACTIONS (1)
  - Headache [Unknown]

NARRATIVE: CASE EVENT DATE: 20200211
